FAERS Safety Report 5934691-0 (Version None)
Quarter: 2008Q4

REPORT INFORMATION
  Report Type: 
  Country: None (occurrence: None)
  Receive Date: 20081029
  Receipt Date: 20081022
  Transmission Date: 20090506
  Serious: Yes (Hospitalization)
  Sender: FDA-Public Use
  Company Number: AT-ASTRAZENECA-2008PK02305

PATIENT
  Age: 40 Year
  Sex: Female

DRUGS (11)
  1. SEROQUEL [Suspect]
     Route: 048
  2. CIPRALEX [Suspect]
     Route: 048
  3. HALDOL [Suspect]
     Route: 048
     Dates: end: 20080515
  4. ZYPREXA [Suspect]
     Route: 048
     Dates: start: 20080516, end: 20080516
  5. ZYPREXA [Suspect]
     Route: 048
     Dates: start: 20080517, end: 20080530
  6. RISPERDAL [Suspect]
     Route: 048
  7. RISPERDAL [Suspect]
     Route: 048
     Dates: start: 20080517, end: 20080530
  8. EUTHYROX [Concomitant]
  9. DEPAKENE [Concomitant]
  10. FERRO GRADUMET [Concomitant]
     Route: 048
     Dates: end: 20080520
  11. ABILIFY [Concomitant]
     Route: 048
     Dates: start: 20080531

REACTIONS (1)
  - HYPERPROLACTINAEMIA [None]
